FAERS Safety Report 23196164 (Version 1)
Quarter: 2023Q4

REPORT INFORMATION
  Report Type: Spontaneous
  Country: US (occurrence: US)
  Receive Date: 20231117
  Receipt Date: 20231117
  Transmission Date: 20240110
  Serious: No
  Sender: FDA-Public Use
  Company Number: US-SA-SAC20231111000192

PATIENT
  Sex: Male
  Weight: 105 kg

DRUGS (3)
  1. DUPIXENT [Suspect]
     Active Substance: DUPILUMAB
     Dosage: 300 MG, QOW
     Route: 058
  2. REMICADE [Suspect]
     Active Substance: INFLIXIMAB
     Route: 042
  3. STELARA [Concomitant]
     Active Substance: USTEKINUMAB

REACTIONS (1)
  - Rash [Unknown]
